FAERS Safety Report 4985508-2 (Version None)
Quarter: 2006Q2

REPORT INFORMATION
  Report Type: 
  Country: None (occurrence: None)
  Receive Date: 20060428
  Receipt Date: 20050628
  Transmission Date: 20061013
  Serious: Yes (Hospitalization)
  Sender: FDA-Public Use
  Company Number: US-GLAXOSMITHKLINE-A0564618A

PATIENT
  Age: 76 Year
  Sex: Female

DRUGS (7)
  1. FLOVENT [Suspect]
     Indication: ASTHMA
     Route: 055
     Dates: end: 20050601
  2. FLOVENT [Suspect]
     Dosage: 2PUFF TWICE PER DAY
     Route: 055
     Dates: start: 20050601
  3. ADVAIR DISKUS 100/50 [Suspect]
     Indication: ASTHMA
     Dosage: 1PUFF SINGLE DOSE
     Route: 055
     Dates: start: 20050101, end: 20050101
  4. AVANDIA [Concomitant]
     Dosage: 4MG PER DAY
  5. BLOOD PRESSURE MEDICATION [Concomitant]
  6. LIPITOR [Concomitant]
  7. LORAZEPAM [Concomitant]

REACTIONS (8)
  - ASTHMA [None]
  - BRONCHOSPASM [None]
  - COUGH [None]
  - DYSPNOEA [None]
  - ILL-DEFINED DISORDER [None]
  - ORAL PAIN [None]
  - PNEUMONIA [None]
  - THROAT IRRITATION [None]
